FAERS Safety Report 12764685 (Version 3)
Quarter: 2019Q1

REPORT INFORMATION
  Report Type: Spontaneous
  Country: GB (occurrence: GB)
  Receive Date: 20160920
  Receipt Date: 20190208
  Transmission Date: 20190417
  Serious: Yes (Disabling, Other)
  Sender: FDA-Public Use
  Company Number: GB-JNJFOC-20160911607

PATIENT
  Age: 8 Year
  Sex: Male
  Weight: 32 kg

DRUGS (5)
  1. CETIRIZINE HYDROCHLORIDE. [Suspect]
     Active Substance: CETIRIZINE HYDROCHLORIDE
     Indication: HYPERSENSITIVITY
     Dosage: IN THE MORNING, CUMULATIVE DOSE TO FIRST REACTION 2889.79 (UNIT UNSPECIFIED)
     Route: 048
     Dates: start: 20120201, end: 20160831
  2. PIRITON [Suspect]
     Active Substance: CHLORPHENIRAMINE MALEATE
     Indication: ECZEMA
     Dosage: AT NIGHT TIME, CUMULATIVE DOSE TO FIRST REACTION 3039.79166 (UNIT UNSPECIFIED)
     Route: 048
     Dates: start: 20120102, end: 20160831
  3. PIRITON [Suspect]
     Active Substance: CHLORPHENIRAMINE MALEATE
     Indication: HYPERSENSITIVITY
     Dosage: AT NIGHT TIME, CUMULATIVE DOSE TO FIRST REACTION 3039.79166 (UNIT UNSPECIFIED)
     Route: 048
     Dates: start: 20120102, end: 20160831
  4. AVAMYS [Concomitant]
     Active Substance: FLUTICASONE FUROATE
     Indication: PRODUCT USED FOR UNKNOWN INDICATION
     Route: 045
  5. CETIRIZINE HYDROCHLORIDE. [Suspect]
     Active Substance: CETIRIZINE HYDROCHLORIDE
     Indication: ECZEMA
     Dosage: IN THE MORNING, CUMULATIVE DOSE TO FIRST REACTION 2889.79 (UNIT UNSPECIFIED)
     Route: 048
     Dates: start: 20120201, end: 20160831

REACTIONS (2)
  - Arnold-Chiari malformation [Recovered/Resolved]
  - Headache [Unknown]
